FAERS Safety Report 4570396-9 (Version None)
Quarter: 2005Q1

REPORT INFORMATION
  Report Type: 
  Country: None (occurrence: None)
  Receive Date: 20050126
  Receipt Date: 20050126
  Transmission Date: 20050727
  Serious: No
  Sender: FDA-Public Use
  Company Number: None

PATIENT
  Age: 27 Year
  Sex: Male
  Weight: 86.1834 kg

DRUGS (4)
  1. AMPHETAMINE SALTS (MIXED) [Suspect]
     Indication: ATTENTION DEFICIT/HYPERACTIVITY DISORDER
     Dosage: 15 MG PO
     Route: 048
     Dates: start: 20040904, end: 20040907
  2. ZOLOFT [Concomitant]
  3. PROZAC [Concomitant]
  4. ADDERALL XR 10 [Concomitant]

REACTIONS (5)
  - FEELING ABNORMAL [None]
  - PARAESTHESIA [None]
  - PARAESTHESIA ORAL [None]
  - RASH [None]
  - SWELLING FACE [None]
